FAERS Safety Report 6700595-9 (Version None)
Quarter: 2010Q2

REPORT INFORMATION
  Report Type: 
  Country: None (occurrence: None)
  Receive Date: 20100428
  Receipt Date: 20100414
  Transmission Date: 20101027
  Serious: No
  Sender: FDA-Public Use
  Company Number: US-B.I. PHARMACEUTICALS,INC./RIDGEFIELD-2010-BP-04386BP

PATIENT
  Sex: Female

DRUGS (5)
  1. MIRAPEX [Suspect]
     Indication: PARKINSON'S DISEASE
     Dosage: 0.125 MG
     Route: 048
     Dates: start: 20091201
  2. MIRAPEX [Suspect]
     Dosage: 0.25 MG
     Route: 048
     Dates: end: 20100101
  3. MIRAPEX [Suspect]
     Dosage: 0.375 MG
     Route: 048
     Dates: start: 20100101
  4. DILTIAZEM HCL [Concomitant]
     Indication: HYPERTENSION
     Dosage: 360 MG
     Dates: start: 20000101
  5. LIPITOR [Concomitant]
     Indication: BLOOD CHOLESTEROL INCREASED
     Dosage: 10 MG
     Dates: start: 20000101, end: 20090101

REACTIONS (7)
  - DYSKINESIA [None]
  - FATIGUE [None]
  - INSOMNIA [None]
  - MUSCULAR WEAKNESS [None]
  - NIGHT SWEATS [None]
  - POLLAKIURIA [None]
  - SOMNOLENCE [None]
